FAERS Safety Report 13892641 (Version 1)
Quarter: 2017Q3

REPORT INFORMATION
  Report Type: Spontaneous
  Country: US (occurrence: US)
  Receive Date: 20170822
  Receipt Date: 20170822
  Transmission Date: 20171127
  Serious: No
  Sender: FDA-Public Use
  Company Number: US-ROCHE-715781

PATIENT
  Age: 45 Year
  Sex: Female
  Weight: 109.8 kg

DRUGS (3)
  1. ACTEMRA [Suspect]
     Active Substance: TOCILIZUMAB
     Indication: RHEUMATOID ARTHRITIS
     Dosage: DRUG WAS INTERRUPTED, DOSE RESUMED ON 10 JUNE 2010.
     Route: 042
     Dates: start: 20100610, end: 20100610
  2. BENADRYL [Concomitant]
     Active Substance: DIPHENHYDRAMINE HYDROCHLORIDE
     Indication: PREMEDICATION
     Route: 042
     Dates: start: 20100708, end: 20100708
  3. ACTEMRA [Suspect]
     Active Substance: TOCILIZUMAB
     Dosage: DOSE: 440 MG.DRUG WAS INTERRUPTED.  DOSE REUMED ON 08 JULY 2010.
     Route: 042
     Dates: start: 20100610, end: 20100708

REACTIONS (2)
  - Pruritus [Recovered/Resolved]
  - Stomatitis [Recovered/Resolved]

NARRATIVE: CASE EVENT DATE: 20100610
